FAERS Safety Report 19899582 (Version 1)
Quarter: 2021Q3

REPORT INFORMATION
  Report Type: Report from Study
  Country: US (occurrence: US)
  Receive Date: 20210929
  Receipt Date: 20210929
  Transmission Date: 20211014
  Serious: Yes (Other)
  Sender: FDA-Public Use
  Company Number: US-TAKEDA-2021TUS059019

PATIENT
  Age: 55 Year
  Sex: Female

DRUGS (1)
  1. LANADELUMAB [Suspect]
     Active Substance: LANADELUMAB
     Indication: IMMUNE SYSTEM DISORDER
     Dosage: 2 MILLILITER(300MG), Q4WEEKS
     Route: 058
     Dates: start: 20200406

REACTIONS (2)
  - Upper limb fracture [Unknown]
  - Fall [Unknown]

NARRATIVE: CASE EVENT DATE: 20210916
